FAERS Safety Report 5284618-2 (Version None)
Quarter: 2007Q1

REPORT INFORMATION
  Report Type: 
  Country: None (occurrence: None)
  Receive Date: 20061229
  Receipt Date: 20060127
  Transmission Date: 20070707
  Serious: Yes (Life-Threatening, Hospitalization, Other)
  Sender: FDA-Public Use
  Company Number: PHEH2005US12948

PATIENT
  Age: 52 Year
  Sex: Male
  Weight: 79.8 kg

DRUGS (4)
  1. CLOZARIL [Suspect]
     Indication: SCHIZOPHRENIA
     Dosage: 200MG Q2 AM, 300MG Q3PM, ORAL
     Route: 048
     Dates: start: 20050601, end: 20051116
  2. NEXIUM [Concomitant]
  3. PAXIL [Concomitant]
  4. PROLIXIN [Concomitant]

REACTIONS (8)
  - ANGIOGRAM [None]
  - CHEST PAIN [None]
  - DEEP VEIN THROMBOSIS [None]
  - OEDEMA PERIPHERAL [None]
  - PAIN IN EXTREMITY [None]
  - PULMONARY EMBOLISM [None]
  - THROMBOLYSIS [None]
  - VENA CAVA FILTER INSERTION [None]
